FAERS Safety Report 6864855-3 (Version None)
Quarter: 2010Q3

REPORT INFORMATION
  Report Type: 
  Country: None (occurrence: None)
  Receive Date: 20100721
  Receipt Date: 20080405
  Transmission Date: 20110219
  Serious: No
  Sender: FDA-Public Use
  Company Number: US-PFIZER INC-2008030867

PATIENT
  Sex: Female
  Weight: 60.909 kg

DRUGS (3)
  1. CHANTIX [Suspect]
     Indication: SMOKING CESSATION THERAPY
     Dates: start: 20080301, end: 20080404
  2. PROZAC [Concomitant]
  3. VICODIN [Concomitant]
     Indication: PAIN IN EXTREMITY

REACTIONS (3)
  - ABNORMAL DREAMS [None]
  - HICCUPS [None]
  - MUSCLE SPASMS [None]
